FAERS Safety Report 18431340 (Version 1)
Quarter: 2020Q4

REPORT INFORMATION
  Report Type: Spontaneous
  Country: US (occurrence: US)
  Receive Date: 20201027
  Receipt Date: 20201027
  Transmission Date: 20210114
  Serious: No
  Sender: FDA-Public Use
  Company Number: US-PFIZER INC-2020414122

PATIENT
  Age: 64 Year
  Sex: Female
  Weight: 58.06 kg

DRUGS (1)
  1. XELJANZ XR [Suspect]
     Active Substance: TOFACITINIB CITRATE
     Indication: RHEUMATOID ARTHRITIS
     Dosage: 11 MG, 1X/DAY
     Route: 048
     Dates: start: 202009, end: 20201022

REACTIONS (5)
  - Oral herpes [Not Recovered/Not Resolved]
  - Stomatitis [Not Recovered/Not Resolved]
  - Glossodynia [Recovering/Resolving]
  - Lip swelling [Recovering/Resolving]
  - Swollen tongue [Not Recovered/Not Resolved]

NARRATIVE: CASE EVENT DATE: 202010
